FAERS Safety Report 21931282 (Version 1)
Quarter: 2023Q1

REPORT INFORMATION
  Report Type: Spontaneous
  Country: US (occurrence: US)
  Receive Date: 20230131
  Receipt Date: 20230131
  Transmission Date: 20230418
  Serious: No
  Sender: FDA-Public Use
  Company Number: US-CIPLA LTD.-2022US07477

PATIENT

DRUGS (2)
  1. ALBUTEROL [Suspect]
     Active Substance: ALBUTEROL
     Indication: Product used for unknown indication
     Dosage: 0.09 MILLIGRAM, PRN (1 PUFF EVERY 4 HOURS AS NEEDED)
     Dates: start: 202212, end: 20221218
  2. ALBUTEROL [Suspect]
     Active Substance: ALBUTEROL
     Dosage: 0.09 MILLIGRAM, PRN (1 PUFF EVERY 4 HOURS AS NEEDED)
     Dates: start: 20221218, end: 20221218

REACTIONS (7)
  - Dyspnoea [Not Recovered/Not Resolved]
  - Heart rate abnormal [Not Recovered/Not Resolved]
  - Device ineffective [Unknown]
  - Incorrect dose administered by device [Unknown]
  - Device delivery system issue [Unknown]
  - Product delivery mechanism issue [Unknown]
  - Product cleaning inadequate [Unknown]

NARRATIVE: CASE EVENT DATE: 20221218
